FAERS Safety Report 8227639-X (Version None)
Quarter: 2012Q1

REPORT INFORMATION
  Report Type: 
  Country: None (occurrence: None)
  Receive Date: 20120322
  Receipt Date: 20120320
  Transmission Date: 20120608
  Serious: Yes (Death, Other)
  Sender: FDA-Public Use
  Company Number: US-BRACCO-004941

PATIENT
  Sex: Male
  Weight: 91 kg

DRUGS (21)
  1. INSULIN HUMAN [Concomitant]
  2. CALCIUM ACETATE [Concomitant]
  3. COUMADIN [Concomitant]
  4. PROHANCE [Suspect]
     Indication: NUCLEAR MAGNETIC RESONANCE IMAGING
     Dates: start: 20021016, end: 20021016
  5. INSULIN [Concomitant]
  6. CONTRAST MEDIA [Suspect]
     Indication: NUCLEAR MAGNETIC RESONANCE IMAGING
     Dates: start: 20021105, end: 20021105
  7. MAGNEVIST [Suspect]
     Indication: NUCLEAR MAGNETIC RESONANCE IMAGING
     Route: 042
     Dates: start: 20021016, end: 20021016
  8. TEMAZEPAM [Concomitant]
  9. CLONIDINE [Concomitant]
  10. MAGNEVIST [Suspect]
     Indication: ANGIOGRAM
     Dosage: ONCE
     Dates: start: 20050125, end: 20050125
  11. MAGNEVIST [Suspect]
     Dosage: ONCE
     Dates: start: 20021115, end: 20021115
  12. MAGNEVIST [Suspect]
     Dosage: ONCE
     Dates: start: 20040716, end: 20040716
  13. DIATX [Concomitant]
  14. LASIX [Concomitant]
  15. PROHANCE [Suspect]
     Indication: ANGIOGRAM
     Dates: start: 20021016, end: 20021016
  16. EPOGEN [Concomitant]
  17. SEVELAMER [Concomitant]
  18. VITAMINS NOS [Concomitant]
  19. FOSRENOL [Concomitant]
  20. MINOXIDIL [Concomitant]
  21. ACCUPRIL [Concomitant]

REACTIONS (1)
  - NEPHROGENIC SYSTEMIC FIBROSIS [None]
